FAERS Safety Report 8599218-6 (Version None)
Quarter: 2012Q3

REPORT INFORMATION
  Report Type: 
  Country: None (occurrence: None)
  Receive Date: 20120816
  Receipt Date: 20111031
  Transmission Date: 20120928
  Serious: No
  Sender: FDA-Public Use
  Company Number: US-AMGEN-USASP2011056377

PATIENT
  Age: 20 Year
  Sex: Female

DRUGS (1)
  1. NEUPOGEN [Suspect]
     Indication: INFANTILE GENETIC AGRANULOCYTOSIS
     Dosage: 330 MUG, Q12H
     Route: 058

REACTIONS (1)
  - ABSCESS [None]
